FAERS Safety Report 18317534 (Version 4)
Quarter: 2022Q4

REPORT INFORMATION
  Report Type: Spontaneous
  Country: ES (occurrence: ES)
  Receive Date: 20200928
  Receipt Date: 20221019
  Transmission Date: 20230112
  Serious: Yes (Life-Threatening, Hospitalization, Other)
  Sender: FDA-Public Use
  Company Number: ES-MACLEODS PHARMA UK LTD-MAC2020028059

PATIENT
  Age: 32 Year
  Sex: Female

DRUGS (6)
  1. MOXIFLOXACIN [Suspect]
     Active Substance: MOXIFLOXACIN
     Indication: Atypical pneumonia
     Dosage: 400 MILLIGRAM, ONCE A DAY
     Route: 048
  2. PILOCARPINE [Suspect]
     Active Substance: PILOCARPINE
     Indication: Iris transillumination defect
     Dosage: DILUTED 0.125 PERCENT, AND TO A CONC HIGHER THAN 2 PERCE
     Route: 065
  3. AZITHROMYCIN [Concomitant]
     Active Substance: AZITHROMYCIN
     Indication: Evidence based treatment
     Dosage: UNK
     Route: 065
  4. CEFTRIAXONE [Concomitant]
     Active Substance: CEFTRIAXONE
     Indication: Evidence based treatment
     Dosage: UNK
     Route: 065
  5. TAMIFLU [Concomitant]
     Active Substance: OSELTAMIVIR PHOSPHATE
     Indication: Influenza
     Dosage: UNK
     Route: 065
  6. PILOCARPINE [Suspect]
     Active Substance: PILOCARPINE
     Indication: Iris transillumination defect
     Dosage: DILUTED 0.125 PERCENT, AND TO A CONC HIGHER THAN 2 PERCE
     Route: 065

REACTIONS (7)
  - Pneumonia [Unknown]
  - Acute respiratory distress syndrome [Unknown]
  - Influenza B virus test positive [Unknown]
  - Therapy non-responder [Unknown]
  - Iris transillumination defect [Unknown]
  - Conjunctival hyperaemia [Unknown]
  - Miosis [Unknown]
